FAERS Safety Report 10069703 (Version 1)
Quarter: 2014Q2

REPORT INFORMATION
  Report Type: Spontaneous
  Country: US (occurrence: None)
  Receive Date: 20140409
  Receipt Date: 20140409
  Transmission Date: 20141212
  Serious: Yes (Other)
  Sender: FDA-Public Use
  Company Number: None

PATIENT
  Age: 61 Year
  Sex: Female
  Weight: 61.24 kg

DRUGS (2)
  1. ZOLPIDEM TARTRATE [Suspect]
     Indication: SLEEP DISORDER THERAPY
     Dosage: 1, ONCE DAILY, TAKEN BY MOUTH
     Route: 048
     Dates: start: 20140322, end: 20140328
  2. ZOLPIDEM TARTRATE [Suspect]
     Indication: MAJOR DEPRESSION
     Dosage: 1, ONCE DAILY, TAKEN BY MOUTH
     Route: 048
     Dates: start: 20140322, end: 20140328

REACTIONS (4)
  - Heart rate irregular [None]
  - Photopsia [None]
  - Abnormal dreams [None]
  - Product substitution issue [None]
